FAERS Safety Report 9447941 (Version 1)
Quarter: 2013Q3

REPORT INFORMATION
  Report Type: Report from Study
  Country: US (occurrence: US)
  Receive Date: 20130808
  Receipt Date: 20130808
  Transmission Date: 20140515
  Serious: Yes (Other)
  Sender: FDA-Public Use
  Company Number: PHHY2013US084842

PATIENT
  Age: 53 Year
  Sex: Male
  Weight: 102 kg

DRUGS (6)
  1. GILENYA [Suspect]
     Indication: RELAPSING-REMITTING MULTIPLE SCLEROSIS
     Dosage: 0.5 MG, QD
     Route: 048
     Dates: start: 20120726
  2. NORTRIPTYLINE [Concomitant]
     Dosage: 25 MG, UNK
     Dates: start: 20100925
  3. LORAZEPAM [Concomitant]
     Dosage: 1 MG, BID
     Dates: start: 201108
  4. EFFEXOR [Concomitant]
     Dates: start: 201203
  5. VITAMIN D3 [Concomitant]
     Dosage: 1000 IU, QD
     Dates: start: 201003
  6. LITHIUM [Concomitant]
     Dosage: 300 MG, TID
     Dates: start: 201202

REACTIONS (5)
  - Speech disorder [Recovered/Resolved]
  - Vision blurred [Not Recovered/Not Resolved]
  - Visual field defect [Not Recovered/Not Resolved]
  - Sexual dysfunction [Unknown]
  - Visual impairment [Unknown]
